FAERS Safety Report 6130722-6 (Version None)
Quarter: 2009Q1

REPORT INFORMATION
  Report Type: 
  Country: None (occurrence: None)
  Receive Date: 20090323
  Receipt Date: 20090313
  Transmission Date: 20090719
  Serious: Yes (Life-Threatening)
  Sender: FDA-Public Use
  Company Number: 2009US000637

PATIENT
  Age: 90 Year
  Sex: Female
  Weight: 33 kg

DRUGS (8)
  1. AMBISOME [Suspect]
     Indication: FEBRILE NEUTROPENIA
     Dosage: 50 MG, UID/QD, IV NOS
     Route: 042
     Dates: start: 20080514, end: 20080517
  2. DIFLUCAN [Concomitant]
  3. NEUPOGEN [Concomitant]
  4. MEROPEN (MEROPENEM TRIHYDRATE) [Concomitant]
  5. FUNGUARD (MICAFUNGIN SODIUM) [Concomitant]
  6. OMEPRAL (OMEPRAZOLE SODIUM) [Concomitant]
  7. HANP [Concomitant]
  8. DOPAMINE HYDROCHLORIDE [Concomitant]

REACTIONS (3)
  - INFECTION [None]
  - MULTI-ORGAN FAILURE [None]
  - RENAL IMPAIRMENT [None]
